FAERS Safety Report 25435789 (Version 5)
Quarter: 2025Q3

REPORT INFORMATION
  Report Type: Report from Study
  Country: GB (occurrence: GB)
  Receive Date: 20250613
  Receipt Date: 20250730
  Transmission Date: 20251021
  Serious: Yes (Hospitalization)
  Sender: ALEXION PHARMACEUTICALS
  Company Number: GB-ASTRAZENECA-202506GBR000953GB

PATIENT
  Age: 0 Year
  Sex: Male

DRUGS (2)
  1. KANUMA [Suspect]
     Active Substance: SEBELIPASE ALFA
     Dosage: 40 MILLIGRAM, QW
  2. KANUMA [Suspect]
     Active Substance: SEBELIPASE ALFA

REACTIONS (20)
  - Vascular device infection [Unknown]
  - Viral infection [Unknown]
  - Vomiting [Recovered/Resolved]
  - Malaise [Unknown]
  - Lethargy [Unknown]
  - Body temperature increased [Unknown]
  - Catheter site dryness [Unknown]
  - Catheter site erythema [Unknown]
  - Diarrhoea [Unknown]
  - Irritability [Unknown]
  - Dyspnoea [Unknown]
  - Respiration abnormal [Unknown]
  - Device kink [Unknown]
  - Influenza [Not Recovered/Not Resolved]
  - Cough [Recovered/Resolved]
  - Emotional distress [Unknown]
  - Pain [Unknown]
  - Catheter site rash [Unknown]
  - Complication associated with device [Unknown]
  - Poor venous access [Unknown]

NARRATIVE: CASE EVENT DATE: 20250602
